FAERS Safety Report 9165675 (Version 1)
Quarter: 2013Q1

REPORT INFORMATION
  Report Type: Spontaneous
  Country: US (occurrence: US)
  Receive Date: 20130315
  Receipt Date: 20130315
  Transmission Date: 20140127
  Serious: Yes (Other)
  Sender: FDA-Public Use
  Company Number: US-SANOFI-AVENTIS-2013SA026179

PATIENT
  Age: 63 Year
  Sex: Female

DRUGS (2)
  1. LANTUS SOLOSTAR [Suspect]
     Indication: TYPE 2 DIABETES MELLITUS
     Dosage: DOSE:80 UNIT(S)
     Route: 051
     Dates: start: 2011
  2. SOLOSTAR [Suspect]
     Indication: TYPE 2 DIABETES MELLITUS
     Dates: start: 2011

REACTIONS (8)
  - Renal failure chronic [Unknown]
  - Arteriovenous fistula operation [Unknown]
  - Intervertebral disc degeneration [Unknown]
  - Spondylitis [Unknown]
  - Back injury [Unknown]
  - Ligament rupture [Unknown]
  - Intervertebral disc protrusion [Unknown]
  - Multiple allergies [Unknown]
